FAERS Safety Report 23537727 (Version 4)
Quarter: 2024Q2

REPORT INFORMATION
  Report Type: Spontaneous
  Country: US (occurrence: US)
  Receive Date: 20240219
  Receipt Date: 20240405
  Transmission Date: 20240716
  Serious: Yes (Other)
  Sender: FDA-Public Use
  Company Number: US-BRISTOL-MYERS SQUIBB COMPANY-2024-026113

PATIENT
  Age: 76 Year
  Sex: Male

DRUGS (2)
  1. LENALIDOMIDE [Suspect]
     Active Substance: LENALIDOMIDE
     Indication: Tremor
     Dosage: TAKE 1 CAPSULE (25MG) BY MOUTH DAILY ON DAYS 1-14 OF 21 DAYS CYCLE. TAKE WHOLE WITH WATER AT SAME TI
     Route: 048
     Dates: end: 20240318
  2. DEXAMETHASONE [Concomitant]
     Active Substance: DEXAMETHASONE
     Indication: Product used for unknown indication
     Dosage: SAME TIME DAILY AS DEXAMETHASONE ON DAYS 1-14 OF A 21 DAY CYCLE

REACTIONS (4)
  - Dyspnoea [Recovering/Resolving]
  - Erythema [Recovered/Resolved]
  - Off label use [Unknown]
  - Platelet count decreased [Recovering/Resolving]
